FAERS Safety Report 4680128-1 (Version None)
Quarter: 2005Q2

REPORT INFORMATION
  Report Type: 
  Country: None (occurrence: None)
  Receive Date: 20050531
  Receipt Date: 20050524
  Transmission Date: 20051028
  Serious: No
  Sender: FDA-Public Use
  Company Number: 2005-03-0556

PATIENT
  Age: 51 Year
  Sex: Male
  Weight: 75 kg

DRUGS (9)
  1. VIRAFERONPEG [Suspect]
     Indication: HEPATITIS C
     Dosage: SEE IMAGE,  SUBCUTANEOUS
     Route: 058
     Dates: start: 20050107, end: 20050309
  2. VIRAFERONPEG [Suspect]
     Indication: HEPATITIS C
     Dosage: SEE IMAGE,  SUBCUTANEOUS
     Route: 058
     Dates: start: 20050107, end: 20050312
  3. VIRAFERONPEG [Suspect]
     Indication: HEPATITIS C
     Dosage: SEE IMAGE,  SUBCUTANEOUS
     Route: 058
     Dates: start: 20050309, end: 20050312
  4. REBETOL [Suspect]
     Indication: HEPATITIS C
     Dosage: SEE IMAGE, ORAL
     Route: 048
     Dates: start: 20050107, end: 20050309
  5. REBETOL [Suspect]
     Indication: HEPATITIS C
     Dosage: SEE IMAGE, ORAL
     Route: 048
     Dates: start: 20050107, end: 20050312
  6. REBETOL [Suspect]
     Indication: HEPATITIS C
     Dosage: SEE IMAGE, ORAL
     Route: 048
     Dates: start: 20050309, end: 20050312
  7. PARACETAMOL [Concomitant]
  8. COSOPT (DORZOLAMIDE HCL/TIMOLOL) [Concomitant]
  9. LEVOCABASTINE HCL [Concomitant]

REACTIONS (6)
  - CHEST PAIN [None]
  - COUGH [None]
  - DRY MOUTH [None]
  - DYSPNOEA [None]
  - INGUINAL HERNIA [None]
  - SCAN ABNORMAL [None]
